FAERS Safety Report 4428357-6 (Version None)
Quarter: 2004Q3

REPORT INFORMATION
  Report Type: 
  Country: None (occurrence: None)
  Receive Date: 20040813
  Receipt Date: 20040731
  Transmission Date: 20050211
  Serious: Yes (Life-Threatening)
  Sender: FDA-Public Use
  Company Number: 04H-163-0269445-00

PATIENT
  Age: 59 Year
  Sex: Female

DRUGS (18)
  1. DROPERIDOL INJECTION (DROPERIDOL) (DROPERIDOL) [Suspect]
     Indication: ANTIEMETIC SUPPORTIVE CARE
     Dosage: 0.625 MG, 45 MINUTES PRIOR TO SURGERY, INTRAVENOUS
     Route: 042
  2. CYCLOBENZAPRINE HCL [Suspect]
     Dosage: 10 MG, EVERY DAY
  3. FLUOXETINE [Suspect]
     Dosage: 30 MG, EVERY DAY
  4. ATRACURIUM BESYLATE [Concomitant]
  5. BUPIVACAINE [Concomitant]
  6. CEFAZOLIN [Concomitant]
  7. FENTANYL [Concomitant]
  8. FLURANE [Concomitant]
  9. KETOROLAC TROMETHAMINE [Concomitant]
  10. LIDOCAINE [Concomitant]
  11. METOCLOPRAMIDE [Concomitant]
  12. MIDAZOLAM [Concomitant]
  13. NITROUS OXIDE [Concomitant]
  14. PROPOFOL [Concomitant]
  15. AMLODIPINE [Concomitant]
  16. DICLOFENAC [Concomitant]
  17. TRIAMTERENE [Concomitant]
  18. HYDROCHLOROTHIAZIDE [Concomitant]

REACTIONS (6)
  - CARDIAC ARREST [None]
  - DRUG INTERACTION [None]
  - PROCEDURAL COMPLICATION [None]
  - TORSADE DE POINTES [None]
  - VENTRICULAR FIBRILLATION [None]
  - VENTRICULAR TACHYCARDIA [None]
